FAERS Safety Report 24871184 (Version 1)
Quarter: 2025Q1

REPORT INFORMATION
  Report Type: Report from Study
  Country: IN (occurrence: IN)
  Receive Date: 20250122
  Receipt Date: 20250122
  Transmission Date: 20250409
  Serious: Yes (Other)
  Sender: ROCHE
  Company Number: IN-002147023-NVSC2025IN006939

PATIENT
  Sex: Female

DRUGS (1)
  1. RANIBIZUMAB [Suspect]
     Active Substance: RANIBIZUMAB
     Indication: Age-related macular degeneration
     Route: 050
     Dates: start: 20241122

REACTIONS (8)
  - Detachment of retinal pigment epithelium [Unknown]
  - Choroidal neovascularisation [Unknown]
  - Subretinal fluid [Unknown]
  - Vitreoretinal traction syndrome [Unknown]
  - Lacrimation increased [Unknown]
  - Eye pruritus [Unknown]
  - Retinal depigmentation [Unknown]
  - Foveal degeneration [Unknown]
